FAERS Safety Report 10467514 (Version 2)
Quarter: 2014Q4

REPORT INFORMATION
  Report Type: Spontaneous
  Country: US (occurrence: US)
  Receive Date: 20140922
  Receipt Date: 20141015
  Transmission Date: 20150528
  Serious: Yes (Hospitalization, Other)
  Sender: FDA-Public Use
  Company Number: US-GILEAD-2014-0115835

PATIENT
  Age: 65 Year
  Sex: Male
  Weight: 83.9 kg

DRUGS (12)
  1. RIBASPHERE RIBAPAK [Suspect]
     Active Substance: RIBAVIRIN
     Indication: HEPATITIS C
     Dosage: 600 MG, UNK
     Route: 048
     Dates: start: 20140613
  2. SPIRONOLACTONE. [Concomitant]
     Active Substance: SPIRONOLACTONE
  3. VITAMIN D [Concomitant]
     Active Substance: CHOLECALCIFEROL
  4. KRILL OIL [Concomitant]
     Active Substance: DIETARY SUPPLEMENT
  5. SOVALDI [Suspect]
     Active Substance: SOFOSBUVIR
     Indication: HEPATITIS C
     Dosage: 400 MG, UNK
     Route: 048
     Dates: start: 20140613
  6. DIAZEPAM. [Concomitant]
     Active Substance: DIAZEPAM
  7. MAGNESIUM [Concomitant]
     Active Substance: MAGNESIUM
  8. NADOLOL. [Concomitant]
     Active Substance: NADOLOL
  9. FUROSEMIDE. [Concomitant]
     Active Substance: FUROSEMIDE
  10. OMEPRAZOLE. [Concomitant]
     Active Substance: OMEPRAZOLE
  11. POTASSIUM CHLORIDE. [Concomitant]
     Active Substance: POTASSIUM CHLORIDE
  12. CLEMASTINE FUMARATE. [Concomitant]
     Active Substance: CLEMASTINE FUMARATE

REACTIONS (2)
  - Haemoglobin decreased [Unknown]
  - Gastric varices haemorrhage [Recovered/Resolved]

NARRATIVE: CASE EVENT DATE: 20140726
